FAERS Safety Report 7011740-2 (Version None)
Quarter: 2010Q3

REPORT INFORMATION
  Report Type: 
  Country: None (occurrence: None)
  Receive Date: 20100923
  Receipt Date: 20090730
  Transmission Date: 20110219
  Serious: No
  Sender: FDA-Public Use
  Company Number: US-WYE-H10414909

PATIENT
  Sex: Female

DRUGS (1)
  1. PREMARIN [Suspect]
     Indication: ATROPHIC VULVOVAGINITIS
     Dosage: 1 GRAM BIWEEKLY
     Route: 067
     Dates: start: 20090625, end: 20090716

REACTIONS (11)
  - ABDOMINAL DISTENSION [None]
  - BREAST SWELLING [None]
  - CONSTIPATION [None]
  - DIZZINESS [None]
  - FLATULENCE [None]
  - FLUID RETENTION [None]
  - HEADACHE [None]
  - NAUSEA [None]
  - SKIN DISORDER [None]
  - VULVOVAGINAL MYCOTIC INFECTION [None]
  - WEIGHT INCREASED [None]
